FAERS Safety Report 13025503 (Version 1)
Quarter: 2016Q4

REPORT INFORMATION
  Report Type: Spontaneous
  Country: IN (occurrence: IN)
  Receive Date: 20161214
  Receipt Date: 20161214
  Transmission Date: 20170207
  Serious: Yes (Death, Hospitalization)
  Sender: FDA-Public Use
  Company Number: IN-ACCORD-046404

PATIENT
  Age: 24 Year
  Sex: Female

DRUGS (15)
  1. CISPLATIN. [Suspect]
     Active Substance: CISPLATIN
     Indication: METASTASIS
  2. METHOTREXATE. [Suspect]
     Active Substance: METHOTREXATE
     Indication: METASTASIS
  3. DACTINOMYCIN [Suspect]
     Active Substance: DACTINOMYCIN
     Indication: CHORIOCARCINOMA
     Dosage: ELEVEN CYCLES
  4. DACTINOMYCIN [Suspect]
     Active Substance: DACTINOMYCIN
     Indication: METASTASIS
     Dosage: FOUR CYCLES
  5. DIAZEPAM. [Concomitant]
     Active Substance: DIAZEPAM
  6. EPTOIN [Concomitant]
     Active Substance: PHENYTOIN SODIUM
     Indication: SEIZURE
  7. ACETAZOLAMIDE/ACETAZOLAMIDE SODIUM [Concomitant]
  8. MANNITOL. [Concomitant]
     Active Substance: MANNITOL
     Route: 042
  9. ETOPOSIDE. [Suspect]
     Active Substance: ETOPOSIDE
     Indication: CHORIOCARCINOMA
     Dosage: ELEVEN CYCLES
  10. DEXAMETHASONE. [Concomitant]
     Active Substance: DEXAMETHASONE
  11. LEVIPIL [Concomitant]
     Active Substance: LEVETIRACETAM
     Indication: SEIZURE
  12. PACLITAXEL/PACLITAXEL LIPOSOME [Suspect]
     Active Substance: PACLITAXEL
     Indication: METASTASIS
  13. CYCLOPHOSPHAMIDE/CYCLOPHOSPHAMIDE MONOHYDRATE [Suspect]
     Active Substance: CYCLOPHOSPHAMIDE
     Indication: CHORIOCARCINOMA
     Dosage: ELEVEN CYCLES
  14. VINCRISTINE [Suspect]
     Active Substance: VINCRISTINE
     Indication: CHORIOCARCINOMA
     Dosage: ELEVEN CYCLES
  15. IFOSFAMIDE. [Suspect]
     Active Substance: IFOSFAMIDE
     Indication: METASTASIS

REACTIONS (3)
  - Acute kidney injury [Fatal]
  - Febrile neutropenia [Fatal]
  - Liver function test increased [Unknown]
